FAERS Safety Report 21784253 (Version 2)
Quarter: 2023Q1

REPORT INFORMATION
  Report Type: Report from Study
  Country: HU (occurrence: HU)
  Receive Date: 20221227
  Receipt Date: 20230110
  Transmission Date: 20230417
  Serious: Yes (Hospitalization, Other)
  Sender: FDA-Public Use
  Company Number: HU-002147023-NVSC2022HU295673

PATIENT

DRUGS (20)
  1. DICLOFENAC [Suspect]
     Active Substance: DICLOFENAC
     Indication: Product used for unknown indication
     Dosage: 1 DF, PRN
     Route: 065
  2. KISQALI [Suspect]
     Active Substance: RIBOCICLIB
     Indication: Product used for unknown indication
     Dosage: UNK
     Route: 065
  3. DOXAZOSIN [Suspect]
     Active Substance: DOXAZOSIN MESYLATE
     Indication: Product used for unknown indication
     Dosage: 4 MG, QD, IF NEEDED
     Route: 065
  4. DICLOFENAC [Suspect]
     Active Substance: DICLOFENAC
     Indication: Product used for unknown indication
     Dosage: 3 DF, PRN
     Route: 065
  5. AMOXICILLIN\CLAVULANIC ACID [Suspect]
     Active Substance: AMOXICILLIN\CLAVULANIC ACID
     Indication: Product used for unknown indication
     Dosage: UNK
     Route: 051
  6. ACETAMINOPHEN\TRAMADOL HYDROCHLORIDE [Concomitant]
     Active Substance: ACETAMINOPHEN\TRAMADOL HYDROCHLORIDE
     Indication: Product used for unknown indication
     Dosage: 1 DF, QD (37.5/325 MG)
     Route: 065
  7. PANTOPRAZOLE SODIUM [Concomitant]
     Active Substance: PANTOPRAZOLE SODIUM
     Indication: Product used for unknown indication
     Dosage: 1 DF, QD (40 MG)
     Route: 065
  8. ATORVASTATIN CALCIUM [Concomitant]
     Active Substance: ATORVASTATIN CALCIUM
     Indication: Product used for unknown indication
     Dosage: 40 MG, QD
     Route: 065
  9. COVEREX AS KOMB [Concomitant]
     Indication: Product used for unknown indication
     Dosage: 1 DF, QD (10/2.5 MG IN MORNING)
     Route: 065
  10. PERINDOPRIL ARGININE [Concomitant]
     Active Substance: PERINDOPRIL ARGININE
     Indication: Product used for unknown indication
     Dosage: 5 MG, QD, IN THE MORNING
     Route: 065
  11. ACTRAPID [Concomitant]
     Active Substance: INSULIN HUMAN
     Indication: Product used for unknown indication
     Dosage: UNK (14 U IN THE MORNING)
     Route: 065
  12. ACTRAPID [Concomitant]
     Active Substance: INSULIN HUMAN
     Dosage: UNK (8 U AT NOON)
     Route: 065
  13. ACTRAPID [Concomitant]
     Active Substance: INSULIN HUMAN
     Dosage: UNK (8 U IN THE AFTERNOON)
     Route: 065
  14. ISOPHANE INSULIN [Concomitant]
     Active Substance: INSULIN NOS
     Indication: Product used for unknown indication
     Dosage: UNK UNK, QD ((12 U IN THE EVENING)
     Route: 065
  15. CAPTOPRIL [Concomitant]
     Active Substance: CAPTOPRIL
     Indication: Product used for unknown indication
     Dosage: 12.5 MG, PRN
     Route: 065
  16. LETROZOLE [Concomitant]
     Active Substance: LETROZOLE
     Indication: Product used for unknown indication
     Dosage: 2.5 MG, QD
     Route: 065
  17. IBANDRONATE SODIUM [Concomitant]
     Active Substance: IBANDRONATE SODIUM
     Indication: Product used for unknown indication
     Dosage: 50 MG, QD
     Route: 065
  18. MEDROL [Concomitant]
     Active Substance: METHYLPREDNISOLONE
     Indication: Product used for unknown indication
     Dosage: 32 MG
     Route: 065
  19. MEDROL [Concomitant]
     Active Substance: METHYLPREDNISOLONE
     Dosage: 16-8-8-4-4 MG
     Route: 065
  20. ALGOPYRINE [Concomitant]
     Indication: Product used for unknown indication
     Dosage: 3 DF, PRN
     Route: 065

REACTIONS (24)
  - Laryngitis [Recovering/Resolving]
  - Aphthous ulcer [Unknown]
  - Breast cancer stage IV [Unknown]
  - Dysphagia [Unknown]
  - Dysphonia [Unknown]
  - Productive cough [Recovering/Resolving]
  - Oropharyngeal pain [Unknown]
  - Hyperaemia [Unknown]
  - Laryngeal oedema [Unknown]
  - Type 1 diabetes mellitus [Unknown]
  - C-reactive protein increased [Unknown]
  - Blood urea increased [Unknown]
  - Inflammatory marker increased [Recovered/Resolved]
  - Glomerular filtration rate decreased [Unknown]
  - Gamma-glutamyltransferase increased [Not Recovered/Not Resolved]
  - Blood glucose increased [Unknown]
  - Glutamate dehydrogenase increased [Not Recovered/Not Resolved]
  - Haemophilia [Unknown]
  - Hepatic enzyme increased [Unknown]
  - Lymphocyte count decreased [Unknown]
  - Monocyte count decreased [Recovered/Resolved]
  - Neutrophil count increased [Unknown]
  - Platelet count decreased [Recovered/Resolved]
  - White blood cell count increased [Recovered/Resolved]

NARRATIVE: CASE EVENT DATE: 20220101
